FAERS Safety Report 9132149 (Version 1)
Quarter: 2013Q1

REPORT INFORMATION
  Report Type: Spontaneous
  Country: US (occurrence: US)
  Receive Date: 20130301
  Receipt Date: 20130301
  Transmission Date: 20140127
  Serious: Yes (Other)
  Sender: FDA-Public Use
  Company Number: US-UCBSA-073873

PATIENT
  Sex: Female

DRUGS (2)
  1. CIMZIA [Suspect]
     Indication: RHEUMATOID ARTHRITIS
     Dosage: UNKNOWN DOSE
     Dates: end: 201212
  2. NO CONCOMITANT MEDICATION [Concomitant]

REACTIONS (3)
  - Immunodeficiency [Unknown]
  - Staphylococcal infection [Recovered/Resolved]
  - Adverse drug reaction [Unknown]
